FAERS Safety Report 19105415 (Version 1)
Quarter: 2021Q2

REPORT INFORMATION
  Report Type: Spontaneous
  Country: US (occurrence: US)
  Receive Date: 20210407
  Receipt Date: 20210407
  Transmission Date: 20210717
  Serious: No
  Sender: FDA-Public Use
  Company Number: NVSC2021US075697

PATIENT
  Sex: Female

DRUGS (1)
  1. XIIDRA [Suspect]
     Active Substance: LIFITEGRAST
     Indication: PRODUCT USED FOR UNKNOWN INDICATION
     Dosage: TWO DROPS PER DAY FOR TEN DAYS AND ONE DROP PER DAY FOR ANOTHER TEN DAYS
     Route: 065
     Dates: end: 20210327

REACTIONS (6)
  - Throat irritation [Unknown]
  - Dysgeusia [Unknown]
  - Abdominal discomfort [Unknown]
  - Diarrhoea [Unknown]
  - Upper-airway cough syndrome [Unknown]
  - Dyspepsia [Unknown]
